FAERS Safety Report 19047097 (Version 1)
Quarter: 2021Q1

REPORT INFORMATION
  Report Type: Spontaneous
  Country: US (occurrence: US)
  Receive Date: 20210323
  Receipt Date: 20210323
  Transmission Date: 20210420
  Serious: No
  Sender: FDA-Public Use
  Company Number: US-ASTRAZENECA-2021A153043

PATIENT
  Age: 66 Year
  Sex: Female
  Weight: 92.5 kg

DRUGS (4)
  1. LEVOTHYROXINE. [Concomitant]
     Active Substance: LEVOTHYROXINE
     Route: 065
  2. ROSUVASTATIN. [Suspect]
     Active Substance: ROSUVASTATIN
     Dosage: UNKNOWN
     Route: 048
  3. OMEPRAZOLE. [Suspect]
     Active Substance: OMEPRAZOLE
     Dosage: UNKNOWN
     Route: 048
  4. PFIZER?BIONTECH COVID?19 VACCINE [Suspect]
     Active Substance: TOZINAMERAN
     Indication: IMMUNISATION
     Dosage: UNKNOWN
     Route: 058
     Dates: start: 20210211, end: 20210304

REACTIONS (14)
  - Migraine [Unknown]
  - Headache [Recovered/Resolved]
  - Renal disorder [Not Recovered/Not Resolved]
  - Tremor [Recovered/Resolved]
  - Chills [Not Recovered/Not Resolved]
  - Pain [Not Recovered/Not Resolved]
  - Body height decreased [Unknown]
  - Pyrexia [Not Recovered/Not Resolved]
  - Nausea [Not Recovered/Not Resolved]
  - Feeling abnormal [Not Recovered/Not Resolved]
  - Mass [Not Recovered/Not Resolved]
  - Peripheral swelling [Not Recovered/Not Resolved]
  - Vertigo [Unknown]
  - Immunodeficiency [Unknown]

NARRATIVE: CASE EVENT DATE: 202102
